FAERS Safety Report 17461928 (Version 1)
Quarter: 2020Q1

REPORT INFORMATION
  Report Type: Spontaneous
  Country: US (occurrence: US)
  Receive Date: 20200226
  Receipt Date: 20200226
  Transmission Date: 20200409
  Serious: No
  Sender: FDA-Public Use
  Company Number: US-NOVOPROD-656432

PATIENT
  Age: 39 Year
  Sex: Female
  Weight: 119.73 kg

DRUGS (1)
  1. SAXENDA [Suspect]
     Active Substance: LIRAGLUTIDE
     Indication: WEIGHT DECREASED
     Dosage: UNK UNK, QD
     Route: 058
     Dates: start: 20190301, end: 20190322

REACTIONS (5)
  - Poor quality sleep [Recovered/Resolved]
  - Drug ineffective [Recovered/Resolved]
  - Increased appetite [Recovered/Resolved]
  - Hunger [Recovered/Resolved]
  - Weight increased [Recovered/Resolved]

NARRATIVE: CASE EVENT DATE: 20190301
